FAERS Safety Report 24398714 (Version 1)
Quarter: 2024Q4

REPORT INFORMATION
  Report Type: Report from Study
  Country: US (occurrence: US)
  Receive Date: 20241004
  Receipt Date: 20241004
  Transmission Date: 20250115
  Serious: No
  Sender: LUNDBECK
  Company Number: US-LUNDBECK-DKLU4003981

PATIENT

DRUGS (1)
  1. VYEPTI [Suspect]
     Active Substance: EPTINEZUMAB-JJMR
     Indication: Migraine
     Route: 041
     Dates: start: 20240826

REACTIONS (5)
  - Throat tightness [Recovering/Resolving]
  - Aphonia [Recovering/Resolving]
  - Nausea [Recovering/Resolving]
  - Parosmia [Unknown]
  - Fatigue [Unknown]
